FAERS Safety Report 9203204 (Version 1)
Quarter: 2013Q1

REPORT INFORMATION
  Report Type: Spontaneous
  Country: US (occurrence: None)
  Receive Date: 20120709
  Receipt Date: 20120709
  Transmission Date: 20140127
  Serious: Yes (Other)
  Sender: FDA-Public Use
  Company Number: PHEH2011US01668

PATIENT
  Age: 61 Year
  Sex: Female
  Weight: 58.3 kg

DRUGS (11)
  1. GLEEVEC (IMATINIB) UNKNOWN [Suspect]
     Indication: CHRONIC MYELOID LEUKAEMIA
     Route: 048
     Dates: start: 20101126, end: 20111103
  2. SENSIPAR (CINACALCET HYDROCHLORIDE) [Concomitant]
  3. NORVASC(AMLODIPINE BESILATE) [Concomitant]
  4. LISINOPRIL (LISINOPRIL) [Concomitant]
  5. TEMAZEPAM (TEMAZEPAM) [Concomitant]
  6. CLARITIN (LORATADINE) [Concomitant]
  7. PRILOSEC [Concomitant]
  8. MYCOPHENOLATE (MYCOPHENOLATE MOFETIL) [Concomitant]
  9. PROGRAF (TACROLIMUS) [Concomitant]
  10. PREDNISOLONE (PREDNISOLONE) [Concomitant]
  11. PAXIL (PAROXETINE HYDROCHLORIDE) [Concomitant]

REACTIONS (7)
  - Oedema peripheral [None]
  - Diarrhoea [None]
  - Dehydration [None]
  - Nausea [None]
  - Muscle spasms [None]
  - Swelling [None]
  - Fluid retention [None]
